FAERS Safety Report 4281801-X (Version None)
Quarter: 2004Q1

REPORT INFORMATION
  Report Type: 
  Country: None (occurrence: None)
  Receive Date: 20040129
  Receipt Date: 20040129
  Transmission Date: 20041129
  Serious: Yes (Life-Threatening, Hospitalization)
  Sender: FDA-Public Use
  Company Number: None

PATIENT
  Age: 76 Year
  Sex: Male
  Weight: 64.4 kg

DRUGS (3)
  1. DILAUDID [Suspect]
     Indication: BACK PAIN
     Dosage: 0.5-1 MG Q 2-4 HOUR INTRAVENOUS
     Route: 042
     Dates: start: 20040125, end: 20040127
  2. MORPHINE SULFATE [Suspect]
     Indication: BACK PAIN
     Dosage: 4 MG Q 3 HOURS INTRAVENOUS
     Route: 042
     Dates: start: 20040125, end: 20040127
  3. VICODIN [Concomitant]

REACTIONS (6)
  - COMA [None]
  - CYANOSIS [None]
  - OBSTRUCTIVE AIRWAYS DISORDER [None]
  - PULSE PRESSURE DECREASED [None]
  - RESPIRATORY RATE DECREASED [None]
  - SPUTUM ABNORMAL [None]
